FAERS Safety Report 18252664 (Version 1)
Quarter: 2020Q3

REPORT INFORMATION
  Report Type: Spontaneous
  Country: FR (occurrence: FR)
  Receive Date: 20200910
  Receipt Date: 20200910
  Transmission Date: 20201103
  Serious: Yes (Life-Threatening)
  Sender: FDA-Public Use
  Company Number: NVSC2020FR247179

PATIENT
  Age: 40 Year
  Sex: Male
  Weight: 75 kg

DRUGS (4)
  1. CLOMIPRAMINE [Suspect]
     Active Substance: CLOMIPRAMINE
     Indication: POISONING DELIBERATE
     Dosage: 75 MG
     Route: 048
     Dates: start: 20200531, end: 20200531
  2. PARACETAMOL [Suspect]
     Active Substance: ACETAMINOPHEN
     Indication: POISONING DELIBERATE
     Dosage: 8 G, 1 TOTAL
     Route: 048
     Dates: start: 20200531, end: 20200531
  3. THERALENE [Suspect]
     Active Substance: TRIMEPRAZINE
     Indication: POISONING DELIBERATE
     Dosage: 30 ML TOTAL
     Route: 048
     Dates: start: 20200531, end: 20200531
  4. MOGADON [Suspect]
     Active Substance: NITRAZEPAM
     Indication: POISONING DELIBERATE
     Dosage: UNK
     Route: 048
     Dates: start: 20200531, end: 20200531

REACTIONS (2)
  - Oxygen saturation decreased [Recovered/Resolved]
  - Coma [Recovered/Resolved]

NARRATIVE: CASE EVENT DATE: 20200531
